FAERS Safety Report 15378767 (Version 1)
Quarter: 2018Q3

REPORT INFORMATION
  Report Type: Spontaneous
  Country: US (occurrence: US)
  Receive Date: 20180906
  Receipt Date: 20180906
  Transmission Date: 20181010
  Serious: Yes (Other)
  Sender: FDA-Public Use
  Company Number: None

PATIENT
  Age: 23 Year
  Sex: Female

DRUGS (1)
  1. HYDROXYPROGESTERONE 250MG/ML (1ML SDV) [Suspect]
     Active Substance: HYDROXYPROGESTERONE
     Indication: PREMATURE LABOUR
     Route: 030
     Dates: start: 20180829, end: 20180829

REACTIONS (5)
  - Reaction to preservatives [None]
  - Injection site erythema [None]
  - Injection site pain [None]
  - Injection site pruritus [None]
  - Rash [None]

NARRATIVE: CASE EVENT DATE: 20180829
